FAERS Safety Report 4667060-4 (Version None)
Quarter: 2005Q2

REPORT INFORMATION
  Report Type: 
  Country: None (occurrence: None)
  Receive Date: 20050520
  Receipt Date: 20050203
  Transmission Date: 20051028
  Serious: Yes (Other)
  Sender: FDA-Public Use
  Company Number: PHEH2005US01618

PATIENT
  Age: 70 Year
  Sex: Female

DRUGS (10)
  1. AREDIA [Suspect]
     Indication: METASTASES TO BONE
     Dosage: 90 MG Q3WKS
     Dates: start: 20030513, end: 20050120
  2. ZOMETA [Suspect]
     Indication: METASTASES TO BONE
     Dosage: 4 MG, UNK
     Dates: start: 20030313, end: 20030421
  3. ARANESP [Concomitant]
     Indication: ANAEMIA
     Dosage: 300 MCG QOW
  4. GEMZAR [Concomitant]
     Dosage: 1900 MG, QW
  5. DEXAMETHASONE [Concomitant]
     Dosage: 20 MG, QW
  6. ALOXI [Concomitant]
     Dosage: 0.25 MG, QW
  7. PERCOCET [Concomitant]
     Dosage: 5/325 MG/ PRN
  8. OXYCONTIN [Concomitant]
     Dosage: 10 MG, Q12H
  9. ATIVAN [Concomitant]
     Dosage: 1 MG, PRN
  10. FILGRASTIM [Concomitant]
     Dosage: 480 MCG X3 AFTER EACH CHEMOTHERAPY

REACTIONS (1)
  - OSTEONECROSIS [None]
